FAERS Safety Report 18078642 (Version 1)
Quarter: 2020Q3

REPORT INFORMATION
  Report Type: Spontaneous
  Country: AU (occurrence: AU)
  Receive Date: 20200728
  Receipt Date: 20200728
  Transmission Date: 20201103
  Serious: Yes (Other)
  Sender: FDA-Public Use
  Company Number: AU-ABBVIE-20K-008-3499769-00

PATIENT
  Age: 81 Year

DRUGS (4)
  1. FLORID [MICONAZOLE] [Suspect]
     Active Substance: MICONAZOLE
     Indication: PRODUCT USED FOR UNKNOWN INDICATION
     Route: 065
  2. ETANERCEPT [Concomitant]
     Active Substance: ETANERCEPT
     Indication: PRODUCT USED FOR UNKNOWN INDICATION
  3. HUMIRA [Suspect]
     Active Substance: ADALIMUMAB
     Indication: ANKYLOSING SPONDYLITIS
     Route: 058
     Dates: start: 2007, end: 2014
  4. INFLIXIMAB [Concomitant]
     Active Substance: INFLIXIMAB
     Indication: PRODUCT USED FOR UNKNOWN INDICATION

REACTIONS (2)
  - Tachyphylaxis [Unknown]
  - Drug-induced liver injury [Unknown]
